FAERS Safety Report 7127841-4 (Version None)
Quarter: 2010Q4

REPORT INFORMATION
  Report Type: 
  Country: None (occurrence: None)
  Receive Date: 20101029
  Receipt Date: 20100702
  Transmission Date: 20110411
  Serious: Yes (Hospitalization)
  Sender: FDA-Public Use
  Company Number: CZ-003092

PATIENT
  Sex: Male
  Weight: 61 kg

DRUGS (13)
  1. DEGARELIX (DEGARELIX) (240 MG, 480 MG) [Suspect]
     Indication: PROSTATE CANCER
     Dosage: (240 MG 1X SUBCUTANEOUS), (480 MG 1X/3 MONTHS SUBCUTANEOUS)
     Route: 058
     Dates: start: 20100128, end: 20100128
  2. DEGARELIX (DEGARELIX) (240 MG, 480 MG) [Suspect]
     Indication: PROSTATE CANCER
     Dosage: (240 MG 1X SUBCUTANEOUS), (480 MG 1X/3 MONTHS SUBCUTANEOUS)
     Route: 058
     Dates: start: 20100201
  3. SPIRIVA [Concomitant]
  4. FORADIL [Concomitant]
  5. VENTOLIN [Concomitant]
  6. LEKOPTIN [Concomitant]
  7. MONOMACK [Concomitant]
  8. BIOMIN H [Concomitant]
  9. VIGANTOL /00318501/ [Concomitant]
  10. BRUFEN /00109201/ [Concomitant]
  11. SERETIDE [Concomitant]
  12. AUGMENTIN '125' [Concomitant]
  13. MUCOLYTICS [Concomitant]

REACTIONS (2)
  - CONDITION AGGRAVATED [None]
  - HERNIA [None]
